FAERS Safety Report 8406037-X (Version None)
Quarter: 2012Q2

REPORT INFORMATION
  Report Type: 
  Country: None (occurrence: None)
  Receive Date: 20120529
  Receipt Date: 20060303
  Transmission Date: 20120825
  Serious: Yes (Hospitalization)
  Sender: FDA-Public Use
  Company Number: 15691-USA-06-00693

PATIENT
  Age: 83 Year
  Sex: Male

DRUGS (16)
  1. MIRTAZAPINE [Concomitant]
  2. LANSOPRAZOLE [Concomitant]
  3. TOLVAPTAN (TOLAPTAN(V4.1)) 30MG [Suspect]
     Indication: CARDIAC FAILURE CONGESTIVE
     Dosage: 30 MG, QD, ORAL
     Route: 048
     Dates: start: 20050331
  4. HUMAN INSULIN [Concomitant]
  5. ISOSORBIDE MONONITRATE [Concomitant]
  6. CARVEDILOL [Concomitant]
  7. CITALOPRAM HYDROBROMIDE [Concomitant]
  8. OXAZEPAM [Concomitant]
  9. GLIPIZIDE [Concomitant]
  10. ACETYLCYSTEINE [Concomitant]
  11. WARFARIN SODIUM [Concomitant]
  12. LOSARTAN [Concomitant]
  13. ACETAMINOPHEN [Concomitant]
  14. NITROGLYCERIN [Concomitant]
  15. ATORVASTATIN CALCIUM [Concomitant]
  16. FUROSEMIDE [Concomitant]

REACTIONS (4)
  - CARDIAC FAILURE [None]
  - BLOOD CREATININE INCREASED [None]
  - CONDITION AGGRAVATED [None]
  - HYPERTENSION [None]
